FAERS Safety Report 6339972-7 (Version None)
Quarter: 2009Q3

REPORT INFORMATION
  Report Type: 
  Country: None (occurrence: None)
  Receive Date: 20090903
  Receipt Date: 20090826
  Transmission Date: 20100115
  Serious: Yes (Hospitalization, Other)
  Sender: FDA-Public Use
  Company Number: US-ASTRAZENECA-2009SE09954

PATIENT
  Sex: Male

DRUGS (2)
  1. SEROQUEL [Suspect]
     Route: 048
     Dates: start: 20080827, end: 20081014
  2. SEROQUEL [Suspect]
     Route: 048
     Dates: start: 20081014, end: 20090701

REACTIONS (3)
  - HEPATIC ENZYME INCREASED [None]
  - HYPERGLYCAEMIA [None]
  - SUICIDAL BEHAVIOUR [None]
